FAERS Safety Report 25774673 (Version 1)
Quarter: 2025Q3

REPORT INFORMATION
  Report Type: Report from Study
  Country: US (occurrence: US)
  Receive Date: 20250908
  Receipt Date: 20250908
  Transmission Date: 20251020
  Serious: Yes (Other)
  Sender: PFIZER
  Company Number: US-PFIZER INC-202500148127

PATIENT
  Age: 67 Year
  Sex: Female

DRUGS (3)
  1. LORBRENA [Suspect]
     Active Substance: LORLATINIB
     Dosage: 100 MG, DAILY
  2. LORBRENA [Suspect]
     Active Substance: LORLATINIB
     Dosage: 100 MG, EVERY OTHER DAY
  3. LORBRENA [Suspect]
     Active Substance: LORLATINIB
     Dosage: TAKE 1 TABLET BY MOUTH ONCE DAILY IN THE MORNING
     Route: 048

REACTIONS (14)
  - Neuropathy peripheral [Not Recovered/Not Resolved]
  - Atrial fibrillation [Not Recovered/Not Resolved]
  - Spinal fracture [Unknown]
  - Fatigue [Recovering/Resolving]
  - Nausea [Unknown]
  - Swelling [Unknown]
  - Weight increased [Not Recovered/Not Resolved]
  - Off label use [Unknown]
  - Salivary hypersecretion [Unknown]
  - Incoherent [Recovering/Resolving]
  - Speech disorder [Unknown]
  - Delusion [Not Recovered/Not Resolved]
  - Sleep disorder [Not Recovered/Not Resolved]
  - Depressed mood [Recovering/Resolving]
